FAERS Safety Report 9882797 (Version 3)
Quarter: 2014Q1

REPORT INFORMATION
  Report Type: Report from Study
  Country: JP (occurrence: JP)
  Receive Date: 20140207
  Receipt Date: 20140305
  Transmission Date: 20141002
  Serious: Yes (Hospitalization)
  Sender: FDA-Public Use
  Company Number: JP-TAKEDA-2014TJP001200

PATIENT
  Age: 69 Year
  Sex: Male
  Weight: 52.7 kg

DRUGS (17)
  1. ALOGLIPTIN [Suspect]
     Indication: TYPE 2 DIABETES MELLITUS
     Dosage: 25 MG, QD
     Route: 048
     Dates: start: 20121113
  2. UNISIA COMBINATION TABLETS HD [Concomitant]
     Dosage: 1 DF, QD
     Route: 048
  3. AMARYL [Concomitant]
     Indication: TYPE 2 DIABETES MELLITUS
     Dosage: 1 MG, 1 DAYS
     Route: 048
     Dates: end: 20130701
  4. AMARYL [Concomitant]
     Dosage: 0.5 MG, 1 DAYS
     Route: 048
     Dates: start: 20131001
  5. GLYCORAN [Concomitant]
     Indication: TYPE 2 DIABETES MELLITUS
     Dosage: 750 MG, 1 DAYS
     Route: 048
     Dates: end: 20130426
  6. METGLUCO [Concomitant]
     Indication: TYPE 2 DIABETES MELLITUS
     Dosage: 1500 MG, 1 DAYS
     Route: 048
     Dates: start: 20130427, end: 20130707
  7. METGLUCO [Concomitant]
     Dosage: 750 MG,1 DAYS
     Route: 048
     Dates: start: 20130708
  8. SEIBULE [Concomitant]
     Indication: TYPE 2 DIABETES MELLITUS
     Dosage: 150 MG, 1 DAYS
     Route: 048
     Dates: start: 20130427, end: 20130707
  9. MAINTATE [Concomitant]
     Dosage: 5 MG, 1 DAYS
     Route: 048
  10. CRESTOR [Concomitant]
     Dosage: 2.5 MG, 1 DAYS
     Route: 048
  11. THYRADIN-S [Concomitant]
     Dosage: 25 ?G, 1 DAYS
     Route: 048
  12. ARICEPT [Concomitant]
     Dosage: 5 MG,1 DAYS
     Route: 048
  13. PLAVIX [Concomitant]
     Dosage: 75 MG, 1 DAYS
     Route: 048
  14. WARFARIN POTASSIUM [Concomitant]
     Dosage: 2.75 MG, 1 DAYS
     Route: 048
  15. PARIET [Concomitant]
     Dosage: 10 MG,1 DAYS
     Route: 048
  16. HALCION [Concomitant]
     Dosage: 0.25 MG, 1 DAYS
     Route: 048
     Dates: start: 20130711
  17. RHYTHMY [Concomitant]
     Dosage: 1 MG, 1 DAYS
     Route: 048
     Dates: start: 20131029

REACTIONS (2)
  - Diabetes mellitus [Recovering/Resolving]
  - Pneumonia mycoplasmal [Recovering/Resolving]
